FAERS Safety Report 13324995 (Version 2)
Quarter: 2017Q2

REPORT INFORMATION
  Report Type: Spontaneous
  Country: US (occurrence: US)
  Receive Date: 20170310
  Receipt Date: 20170425
  Transmission Date: 20170830
  Serious: Yes (Other)
  Sender: FDA-Public Use
  Company Number: US-MATRIXX INITIATIVES, INC.-1064127

PATIENT
  Age: 60 Year
  Sex: Female
  Weight: 58.97 kg

DRUGS (1)
  1. ZICAM COLD REMEDY RAPIDMELTS [Suspect]
     Active Substance: HOMEOPATHICS\ZINC ACETATE ANHYDROUS\ZINC GLUCONATE
     Indication: VIRAL UPPER RESPIRATORY TRACT INFECTION
     Route: 048
     Dates: start: 20170305, end: 20170307

REACTIONS (9)
  - Dysphagia [None]
  - Chills [None]
  - Tremor [None]
  - Oral pain [None]
  - Lip oedema [None]
  - Oedema mouth [None]
  - Dyspnoea [None]
  - Urticaria [None]
  - Paraesthesia oral [None]
